FAERS Safety Report 6180472-5 (Version None)
Quarter: 2009Q2

REPORT INFORMATION
  Report Type: 
  Country: None (occurrence: None)
  Receive Date: 20090506
  Receipt Date: 20090427
  Transmission Date: 20091009
  Serious: Yes (Other)
  Sender: FDA-Public Use
  Company Number: PHHY2009CA13900

PATIENT
  Sex: Female

DRUGS (9)
  1. ACLASTA [Suspect]
     Indication: OSTEOPOROSIS
     Dosage: UNK
     Route: 042
     Dates: start: 20090407
  2. ATIVAN [Concomitant]
  3. ZESTRIL [Concomitant]
  4. ZOCOR [Concomitant]
  5. CALCIUM [Concomitant]
  6. PANTOPRAZOLE SODIUM [Concomitant]
  7. CELEXA [Concomitant]
  8. COLACE [Concomitant]
  9. IMPERIDONE [Concomitant]

REACTIONS (9)
  - AGGRESSION [None]
  - CONSTIPATION [None]
  - DEPRESSION [None]
  - FATIGUE [None]
  - HEADACHE [None]
  - MUSCULOSKELETAL STIFFNESS [None]
  - MYELOFIBROSIS [None]
  - OEDEMA PERIPHERAL [None]
  - READING DISORDER [None]
